FAERS Safety Report 6815481-3 (Version None)
Quarter: 2010Q2

REPORT INFORMATION
  Report Type: 
  Country: None (occurrence: None)
  Receive Date: 20100629
  Receipt Date: 20100616
  Transmission Date: 20101027
  Serious: Yes (Hospitalization)
  Sender: FDA-Public Use
  Company Number: 2006-07-0491

PATIENT
  Age: 75 Year
  Sex: Male

DRUGS (1)
  1. CELESTAMINE TAB [Suspect]
     Indication: PRURITUS
     Dates: end: 20060712

REACTIONS (7)
  - AGGRESSION [None]
  - CONFUSIONAL STATE [None]
  - DELIRIUM [None]
  - DRUG TOXICITY [None]
  - LOGORRHOEA [None]
  - MEMORY IMPAIRMENT [None]
  - RESTLESSNESS [None]
